FAERS Safety Report 26048312 (Version 1)
Quarter: 2025Q4

REPORT INFORMATION
  Report Type: Report from Study
  Country: US (occurrence: None)
  Receive Date: 20251114
  Receipt Date: 20251114
  Transmission Date: 20260117
  Serious: Yes (Other)
  Sender: UCB
  Company Number: US-UCBSA-2025070811

PATIENT

DRUGS (2)
  1. FENFLURAMINE HYDROCHLORIDE [Suspect]
     Active Substance: FENFLURAMINE HYDROCHLORIDE
     Indication: Epileptic encephalopathy
     Dosage: UNK
  2. FENFLURAMINE HYDROCHLORIDE [Suspect]
     Active Substance: FENFLURAMINE HYDROCHLORIDE
     Indication: Off label use

REACTIONS (8)
  - Seizure [Unknown]
  - Fatigue [Unknown]
  - Weight decreased [Unknown]
  - Sleep disorder [Unknown]
  - Vomiting [Unknown]
  - Irritability [Unknown]
  - Anxiety [Unknown]
  - Off label use [Unknown]
